FAERS Safety Report 8770110 (Version 2)
Quarter: 2012Q4

REPORT INFORMATION
  Report Type: 
  Country: US (occurrence: US)
  Receive Date: 20120906
  Receipt Date: 20120927
  Transmission Date: 20130627
  Serious: Yes (Other)
  Sender: FDA-Public Use
  Company Number: US-PFIZER INC-2012218730

PATIENT
  Age: 63 Year
  Sex: Male

DRUGS (24)
  1. NEURONTIN [Suspect]
     Indication: TRIGEMINAL NEURALGIA
     Dosage: 600 mg, 3x
  2. NEURONTIN [Suspect]
     Indication: POLIOMYELITIS
     Dosage: 300 mg, 3x/day
     Dates: start: 1987
  3. NEURONTIN [Suspect]
     Indication: PAIN MANAGEMENT
  4. NEURONTIN [Suspect]
     Indication: AFFECTIVE DISORDER
  5. NEURONTIN [Suspect]
     Indication: SLEEP DISORDER
  6. NEURONTIN [Suspect]
     Indication: DEPRESSION
  7. CELEBREX [Suspect]
     Dosage: 200 mg, UNK
  8. ELAVIL [Suspect]
     Indication: TRIGEMINAL NEURALGIA
     Dosage: 50 mg, 3x/day
  9. ELAVIL [Suspect]
     Indication: PAIN MANAGEMENT
  10. ELAVIL [Suspect]
     Indication: AFFECTIVE DISORDER
  11. ELAVIL [Suspect]
     Indication: SLEEP DISORDER
  12. ELAVIL [Suspect]
     Indication: DEPRESSION
  13. CYMBALTA [Suspect]
     Dosage: 60 mg, 2x
  14. FLEXERIL [Suspect]
     Dosage: UNK
  15. ULTRAM [Suspect]
     Dosage: 50 UNK, 4x/day
  16. TEGRETAL [Concomitant]
     Indication: POLIOMYELITIS
  17. TEGRETAL [Concomitant]
     Indication: PAIN MANAGEMENT
  18. TEGRETAL [Concomitant]
     Indication: AFFECTIVE DISORDER
  19. TEGRETAL [Concomitant]
     Indication: SLEEP DISORDER
  20. TEGRETAL [Concomitant]
     Indication: DEPRESSION
  21. LAMICTAL [Concomitant]
     Indication: PAIN MANAGEMENT
  22. LAMICTAL [Concomitant]
     Indication: AFFECTIVE DISORDER
  23. LAMICTAL [Concomitant]
     Indication: SLEEP DISORDER
  24. LAMICTAL [Concomitant]
     Indication: DEPRESSION

REACTIONS (4)
  - Diabetes mellitus [Unknown]
  - Pain [Unknown]
  - Paraesthesia [Unknown]
  - Hypoaesthesia [Unknown]
